FAERS Safety Report 24321837 (Version 1)
Quarter: 2024Q3

REPORT INFORMATION
  Report Type: Report from Study
  Country: US (occurrence: None)
  Receive Date: 20240916
  Receipt Date: 20240916
  Transmission Date: 20241017
  Serious: Yes (Other)
  Sender: ASTRAZENECA
  Company Number: 2024A206601

PATIENT
  Sex: Female

DRUGS (1)
  1. TAGRISSO [Suspect]
     Active Substance: OSIMERTINIB
     Route: 048

REACTIONS (5)
  - Lung neoplasm malignant [Unknown]
  - Breast cancer [Unknown]
  - Nephrolithiasis [Unknown]
  - Gait disturbance [Unknown]
  - Fatigue [Unknown]
